FAERS Safety Report 5190192-1 (Version None)
Quarter: 2006Q4

REPORT INFORMATION
  Report Type: 
  Country: None (occurrence: None)
  Receive Date: 20061222
  Receipt Date: 20061017
  Transmission Date: 20070319
  Serious: No
  Sender: FDA-Public Use
  Company Number: US-AMGEN-US197191

PATIENT
  Sex: Female

DRUGS (12)
  1. ARANESP [Suspect]
     Indication: ANAEMIA
     Route: 058
     Dates: start: 20061009
  2. FISH OIL [Concomitant]
  3. VITAMIN CAP [Concomitant]
  4. METOPROLOL SUCCINATE [Concomitant]
  5. WELCHOL [Concomitant]
  6. VYTORIN [Concomitant]
  7. CLONAZEPAM [Concomitant]
  8. CLONIDINE [Concomitant]
  9. NIFEDIPINE [Concomitant]
  10. AVANDIA [Concomitant]
  11. FERROUS SULFATE TAB [Concomitant]
  12. ASPIRIN [Concomitant]

REACTIONS (2)
  - FATIGUE [None]
  - LETHARGY [None]
